FAERS Safety Report 7388110-0 (Version None)
Quarter: 2011Q2

REPORT INFORMATION
  Report Type: 
  Country: None (occurrence: None)
  Receive Date: 20110401
  Receipt Date: 20110318
  Transmission Date: 20111010
  Serious: Yes (Other)
  Sender: FDA-Public Use
  Company Number: US-ELI_LILLY_AND_COMPANY-US201103006244

PATIENT
  Sex: Female

DRUGS (18)
  1. VITAMIN D [Concomitant]
  2. OXYCODONE [Concomitant]
     Dosage: 5 MG, UNK
  3. TUMS [Concomitant]
  4. PERCOCET [Concomitant]
  5. OMEPRAZOLE [Concomitant]
  6. LORAZEPAM [Concomitant]
  7. ZYPREXA [Concomitant]
  8. NAMENDA [Concomitant]
  9. FURADANTIN [Concomitant]
  10. VITAMIN D [Concomitant]
  11. TYLENOL (CAPLET) [Concomitant]
  12. FORTEO [Suspect]
     Dosage: 20 UG, QD
     Dates: end: 20110107
  13. GENTEAL [Concomitant]
  14. ASPIRIN [Concomitant]
  15. DOCUSATE SODIUM [Concomitant]
  16. MILK OF MAGNESIA TAB [Concomitant]
  17. SIMVASTATIN [Concomitant]
  18. FLUVOXAMINE MALEATE [Concomitant]

REACTIONS (1)
  - HIP FRACTURE [None]
